FAERS Safety Report 23239021 (Version 2)
Quarter: 2023Q4

REPORT INFORMATION
  Report Type: Report from Study
  Country: KW (occurrence: KW)
  Receive Date: 20231129
  Receipt Date: 20231220
  Transmission Date: 20240109
  Serious: Yes (Hospitalization)
  Sender: FDA-Public Use
  Company Number: KW-AstraZeneca-2023A268293

PATIENT
  Age: 362 Day
  Sex: Male

DRUGS (1)
  1. SYNAGIS [Suspect]
     Active Substance: PALIVIZUMAB
     Indication: Prophylaxis
     Dosage: ONCE 4 WEEK
     Route: 030

REACTIONS (1)
  - Hypoxia [Recovered/Resolved]

NARRATIVE: CASE EVENT DATE: 20231111
